FAERS Safety Report 6538002-1 (Version None)
Quarter: 2010Q1

REPORT INFORMATION
  Report Type: 
  Country: None (occurrence: None)
  Receive Date: 20100112
  Receipt Date: 20100112
  Transmission Date: 20100710
  Serious: Yes (Other)
  Sender: FDA-Public Use
  Company Number: None

PATIENT
  Sex: Male
  Weight: 58.9676 kg

DRUGS (1)
  1. MINOCYCLINE 100 MG VARIOUS [Suspect]
     Indication: ACNE
     Dosage: 100MG QD PO
     Route: 048
     Dates: start: 20071019, end: 20091216

REACTIONS (6)
  - ARTHRALGIA [None]
  - CHILLS [None]
  - FATIGUE [None]
  - LIVER FUNCTION TEST ABNORMAL [None]
  - PYREXIA [None]
  - RED BLOOD CELL SEDIMENTATION RATE INCREASED [None]
